FAERS Safety Report 15485289 (Version 1)
Quarter: 2018Q4

REPORT INFORMATION
  Report Type: Spontaneous
  Country: US (occurrence: US)
  Receive Date: 20181010
  Receipt Date: 20181010
  Transmission Date: 20190205
  Serious: No
  Sender: FDA-Public Use
  Company Number: US-ROCHE-2167301

PATIENT
  Age: 34 Year
  Sex: Male

DRUGS (2)
  1. ZELBORAF [Suspect]
     Active Substance: VEMURAFENIB
     Indication: MALIGNANT MELANOMA
     Dosage: EVERY 12 HOURS ONGOING
     Route: 048
     Dates: start: 20170327
  2. ZELBORAF [Suspect]
     Active Substance: VEMURAFENIB
     Indication: POLYARTHRITIS

REACTIONS (1)
  - Synovitis [Unknown]

NARRATIVE: CASE EVENT DATE: 20180701
